FAERS Safety Report 6460719-8 (Version None)
Quarter: 2009Q4

REPORT INFORMATION
  Report Type: 
  Country: None (occurrence: None)
  Receive Date: 20091130
  Receipt Date: 20091120
  Transmission Date: 20100525
  Serious: Yes (Hospitalization)
  Sender: FDA-Public Use
  Company Number: ZA-ASTRAZENECA-2009SE22991

PATIENT
  Age: 15308 Day
  Sex: Male
  Weight: 73 kg

DRUGS (5)
  1. CRESTOR [Suspect]
     Indication: HYPERCHOLESTEROLAEMIA
     Route: 048
     Dates: start: 20091027, end: 20091027
  2. ASCORBIC ACID [Concomitant]
  3. ARTHROCHOICE [Concomitant]
  4. ATERAX [Concomitant]
     Indication: ANXIETY
     Route: 030
     Dates: start: 20091027, end: 20091027
  5. BILACOR [Concomitant]
     Indication: TACHYCARDIA
     Route: 048
     Dates: start: 20091027, end: 20091028

REACTIONS (5)
  - CHEST PAIN [None]
  - HYPOAESTHESIA [None]
  - PAIN IN EXTREMITY [None]
  - PANIC ATTACK [None]
  - PARAESTHESIA [None]
